FAERS Safety Report 15053207 (Version 2)
Quarter: 2018Q2

REPORT INFORMATION
  Report Type: Report from Study
  Country: US (occurrence: US)
  Receive Date: 20180622
  Receipt Date: 20180626
  Transmission Date: 20180711
  Serious: Yes (Hospitalization)
  Sender: FDA-Public Use
  Company Number: US-ACTELION-A-US2018-173170

PATIENT
  Age: 65 Year
  Sex: Female
  Weight: 69.39 kg

DRUGS (5)
  1. TRACLEER [Suspect]
     Active Substance: BOSENTAN
     Indication: PULMONARY ARTERIAL HYPERTENSION
     Dosage: 125 MG, BID
     Route: 048
     Dates: end: 2018
  2. UPTRAVI [Suspect]
     Active Substance: SELEXIPAG
     Indication: PULMONARY ARTERIAL HYPERTENSION
     Dosage: 200 MCG, BID
     Route: 048
  3. NARCAN [Concomitant]
     Active Substance: NALOXONE HYDROCHLORIDE
  4. COUMADIN [Concomitant]
     Active Substance: WARFARIN SODIUM
  5. AMLODIPINE [Concomitant]
     Active Substance: AMLODIPINE BESYLATE

REACTIONS (11)
  - Fluid retention [Unknown]
  - Hypersensitivity [Unknown]
  - Pulmonary arterial hypertension [Unknown]
  - Hypotension [Unknown]
  - Eye irritation [Unknown]
  - Erythema [Unknown]
  - Therapy non-responder [Unknown]
  - Pain [Unknown]
  - Pericardial effusion [Unknown]
  - Delirium [Unknown]
  - Memory impairment [Unknown]
